FAERS Safety Report 7407579-6 (Version None)
Quarter: 2011Q2

REPORT INFORMATION
  Report Type: 
  Country: None (occurrence: None)
  Receive Date: 20110406
  Receipt Date: 20110406
  Transmission Date: 20111010
  Serious: Yes (Hospitalization)
  Sender: FDA-Public Use
  Company Number: None

PATIENT
  Sex: Female
  Weight: 123.06 kg

DRUGS (2)
  1. CISPLATIN [Suspect]
     Dosage: 75 MG
  2. PEMETREXED [Suspect]
     Dosage: 750 MG

REACTIONS (4)
  - PANCYTOPENIA [None]
  - ANAEMIA [None]
  - PATHOLOGICAL FRACTURE [None]
  - ATELECTASIS [None]
